FAERS Safety Report 8916729 (Version 1)
Quarter: 2012Q4

REPORT INFORMATION
  Report Type: Report from Study
  Country: IT (occurrence: IT)
  Receive Date: 20121120
  Receipt Date: 20121120
  Transmission Date: 20130627
  Serious: Yes (Other)
  Sender: FDA-Public Use
  Company Number: IT-CELGENEUS-083-50794-12110677

PATIENT
  Age: 65 Year

DRUGS (1)
  1. VIDAZA [Suspect]
     Indication: ACUTE MYELOID LEUKEMIA
     Route: 065

REACTIONS (2)
  - Cardiovascular disorder [Unknown]
  - Respiratory disorder [Unknown]
